FAERS Safety Report 6085104-2 (Version None)
Quarter: 2009Q1

REPORT INFORMATION
  Report Type: 
  Country: None (occurrence: None)
  Receive Date: 20090217
  Receipt Date: 20090204
  Transmission Date: 20090719
  Serious: Yes (Hospitalization)
  Sender: FDA-Public Use
  Company Number: CHPA2009US02715

PATIENT
  Age: 84 Year
  Sex: Male
  Weight: 81.6 kg

DRUGS (1)
  1. BUFFERIN REGULAR STRENGTH  (ACETYLSALICYCLIC ACID) TABLET [Suspect]
     Indication: NEPHROLITHIASIS
     Dosage: 1 DF, QD, ORAL
     Route: 048

REACTIONS (3)
  - CORONARY ARTERY BYPASS [None]
  - INTENTIONAL DRUG MISUSE [None]
  - OFF LABEL USE [None]
